FAERS Safety Report 7008962-3 (Version None)
Quarter: 2010Q3

REPORT INFORMATION
  Report Type: 
  Country: None (occurrence: None)
  Receive Date: 20100923
  Receipt Date: 20100917
  Transmission Date: 20110219
  Serious: Yes (Other)
  Sender: FDA-Public Use
  Company Number: PHHY2010BR62194

PATIENT
  Sex: Female
  Weight: 73 kg

DRUGS (1)
  1. CATAFLAM [Suspect]

REACTIONS (2)
  - HYPERSENSITIVITY [None]
  - SWELLING [None]
